FAERS Safety Report 22223894 (Version 3)
Quarter: 2023Q2

REPORT INFORMATION
  Report Type: Report from Study
  Country: US (occurrence: US)
  Receive Date: 20230418
  Receipt Date: 20230615
  Transmission Date: 20230721
  Serious: Yes (Other)
  Sender: FDA-Public Use
  Company Number: US-002147023-NVSC2023US085750

PATIENT
  Sex: Female

DRUGS (1)
  1. ENTRESTO [Suspect]
     Active Substance: SACUBITRIL\VALSARTAN
     Indication: Product used for unknown indication
     Dosage: 1 DOSAGE FORM, BID
     Route: 065
     Dates: start: 202207

REACTIONS (6)
  - Spinal fracture [Unknown]
  - Osteoporosis [Unknown]
  - Fluid retention [Recovering/Resolving]
  - Weight increased [Recovering/Resolving]
  - Gastroenteritis viral [Recovering/Resolving]
  - Oxygen saturation abnormal [Unknown]
